FAERS Safety Report 7747926-9 (Version None)
Quarter: 2011Q3

REPORT INFORMATION
  Report Type: 
  Country: None (occurrence: None)
  Receive Date: 20110913
  Receipt Date: 20110620
  Transmission Date: 20111222
  Serious: No
  Sender: FDA-Public Use
  Company Number: US-ALLERGAN-1108174US

PATIENT
  Age: 53 Year
  Sex: Female

DRUGS (4)
  1. REFRESH MOISTURIZER EYE DROP [Concomitant]
     Indication: SEASONAL ALLERGY
     Dosage: UNK
  2. VISINE                             /00256502/ [Concomitant]
     Indication: SEASONAL ALLERGY
     Dosage: UNK
  3. INSULIN [Concomitant]
     Indication: DIABETES MELLITUS
  4. LATISSE [Suspect]
     Indication: HYPOTRICHOSIS
     Dosage: 1 GTT, QHS
     Route: 061

REACTIONS (4)
  - SKIN HYPERPIGMENTATION [None]
  - SCLERAL PIGMENTATION [None]
  - EYE PRURITUS [None]
  - SCLERAL HYPERAEMIA [None]
